FAERS Safety Report 20371770 (Version 1)
Quarter: 2022Q1

REPORT INFORMATION
  Report Type: Spontaneous
  Country: DE (occurrence: DE)
  Receive Date: 20220124
  Receipt Date: 20220124
  Transmission Date: 20220423
  Serious: Yes (Other)
  Sender: FDA-Public Use
  Company Number: DE-BAUSCH-BL-2022-001900

PATIENT
  Sex: Male

DRUGS (3)
  1. RIFAXIMIN [Suspect]
     Active Substance: RIFAXIMIN
     Indication: Product used for unknown indication
     Dosage: 1 TABLET, IF REQUIRED/ AS NEEDED,  AS NECESSARY
     Route: 065
     Dates: start: 20110410
  2. OMEPRAZOLE [Suspect]
     Active Substance: OMEPRAZOLE
     Indication: Product used for unknown indication
     Route: 065
     Dates: start: 20011225
  3. MOVICOL [Suspect]
     Active Substance: POLYETHYLENE GLYCOL 3350\POTASSIUM CHLORIDE\SODIUM BICARBONATE\SODIUM CHLORIDE
     Indication: Product used for unknown indication
     Dosage: NO. OF UNITS PER INTERVAL: 1 - INTERVAL: WEEK - 1 SACHET, ONCE A WEEK
     Route: 065
     Dates: start: 201512

REACTIONS (6)
  - Intestinal obstruction [Recovered/Resolved]
  - Inflammation [Recovered/Resolved]
  - Intestinal perforation [Recovered/Resolved]
  - Colitis [Recovered/Resolved]
  - Constipation [Recovered/Resolved]
  - Diarrhoea [Recovered/Resolved]

NARRATIVE: CASE EVENT DATE: 20191201
